FAERS Safety Report 9826841 (Version 1)
Quarter: 2013Q4

REPORT INFORMATION
  Report Type: Spontaneous
  Country: GB (occurrence: None)
  Receive Date: 20131112
  Receipt Date: 20131112
  Transmission Date: 20140711
  Serious: Yes (Other)
  Sender: FDA-Public Use
  Company Number: E2B_00000759

PATIENT
  Age: 46 Year
  Sex: Male

DRUGS (6)
  1. LISINOPRIL [Suspect]
     Indication: PRODUCT USED FOR UNKNOWN INDICATION
     Dosage: UNKNOWN, UNKNOWN, UNKNOWN
  2. VENLAFAXINE (UNKNOWN) (VENLAFAXINE HYDROCHLORIDE) [Concomitant]
  3. BECLOMETASONE DIPROPIONATE (CLENIL MODULITE) (UNKNOWN) [Concomitant]
  4. SALBUTAMOL (UNKNOWN) [Concomitant]
  5. AMLODIPINE (UNKNOWN) [Concomitant]
  6. CETIRIZINE (UNKNOWN) [Concomitant]

REACTIONS (1)
  - Angioedema [None]
